FAERS Safety Report 14563891 (Version 1)
Quarter: 2018Q1

REPORT INFORMATION
  Report Type: Spontaneous
  Country: US (occurrence: US)
  Receive Date: 20180222
  Receipt Date: 20180222
  Transmission Date: 20180509
  Serious: No
  Sender: FDA-Public Use
  Company Number: None

PATIENT
  Age: 69 Year
  Sex: Male
  Weight: 117.93 kg

DRUGS (2)
  1. BRILINTA [Suspect]
     Active Substance: TICAGRELOR
     Indication: CORONARY ARTERIAL STENT INSERTION
     Dosage: 2 PILLS DAILY TWICE DAILY MORNING EVENING MOUTH WITH LOW DOSAGE ASPIRIN 81 MG
     Route: 048
     Dates: start: 20180103
  2. LOS DOSAGE ASPRIN [Concomitant]

REACTIONS (9)
  - Depression [None]
  - Anxiety [None]
  - Chromaturia [None]
  - Epistaxis [None]
  - Chest pain [None]
  - Back pain [None]
  - Dyspnoea [None]
  - Mood swings [None]
  - Anger [None]

NARRATIVE: CASE EVENT DATE: 20180103
